FAERS Safety Report 7215992-5 (Version None)
Quarter: 2011Q1

REPORT INFORMATION
  Report Type: 
  Country: None (occurrence: None)
  Receive Date: 20110107
  Receipt Date: 20101224
  Transmission Date: 20110831
  Serious: Yes (Disabling, Other)
  Sender: FDA-Public Use
  Company Number: PHHY2010FR88492

PATIENT
  Sex: Female

DRUGS (3)
  1. PACLITAXEL [Suspect]
     Indication: BREAST CANCER
     Dosage: 80 MG/M2, 3 TIMES EVERY 4 WEEKS
     Route: 042
     Dates: start: 20091010, end: 20100119
  2. AVASTIN [Suspect]
     Indication: BREAST CANCER
     Dosage: 100 MG/KG, ONCE EVERY 21 DAYS
     Dates: start: 20091013, end: 20100105
  3. ARIXTRA [Concomitant]
     Indication: VENOUS THROMBOSIS
     Dosage: UNK
     Route: 042

REACTIONS (3)
  - UPPER AIRWAY OBSTRUCTION [None]
  - EPISTAXIS [None]
  - NASAL SEPTUM PERFORATION [None]
